FAERS Safety Report 15151477 (Version 3)
Quarter: 2018Q3

REPORT INFORMATION
  Report Type: Spontaneous
  Country: US (occurrence: US)
  Receive Date: 20180716
  Receipt Date: 20180914
  Transmission Date: 20181010
  Serious: No
  Sender: FDA-Public Use
  Company Number: US-ACTELION-A-US2018-175406

PATIENT
  Age: 77 Year
  Sex: Female
  Weight: 68.48 kg

DRUGS (1)
  1. OPSUMIT [Suspect]
     Active Substance: MACITENTAN
     Indication: PULMONARY HYPERTENSION
     Dosage: 10 MG, QD
     Route: 048
     Dates: start: 20180619

REACTIONS (11)
  - Fluid retention [Unknown]
  - Constipation [Unknown]
  - Sinus disorder [Unknown]
  - Headache [Unknown]
  - Anaemia [Unknown]
  - Nasal congestion [Unknown]
  - Swelling [Unknown]
  - Respiratory tract irritation [Unknown]
  - Cough [Unknown]
  - Wheezing [Unknown]
  - Fatigue [Unknown]
